FAERS Safety Report 7637445-2 (Version None)
Quarter: 2011Q3

REPORT INFORMATION
  Report Type: 
  Country: None (occurrence: None)
  Receive Date: 20110726
  Receipt Date: 20110715
  Transmission Date: 20111222
  Serious: Yes (Other)
  Sender: FDA-Public Use
  Company Number: PHFR2011GB02930

PATIENT
  Sex: Male

DRUGS (4)
  1. CLOZAPINE [Suspect]
     Indication: SCHIZOPHRENIA
     Dosage: 150 MG AM + 250 MG PM
     Route: 048
     Dates: start: 20070804
  2. CLOZAPINE [Suspect]
     Dosage: 500 MG/DAY
     Route: 048
  3. CLOZAPINE [Suspect]
     Dosage: 250 MG PM
     Route: 048
     Dates: start: 20110502
  4. CLOZAPINE [Suspect]
     Dosage: 150 MG AM
     Route: 048
     Dates: start: 20110503

REACTIONS (1)
  - MEDICATION ERROR [None]
